FAERS Safety Report 5201544-5 (Version None)
Quarter: 2007Q1

REPORT INFORMATION
  Report Type: 
  Country: None (occurrence: None)
  Receive Date: 20070108
  Receipt Date: 20061229
  Transmission Date: 20070707
  Serious: Yes (Hospitalization, Other)
  Sender: FDA-Public Use
  Company Number: US-PFIZER INC-2007000185

PATIENT
  Sex: Female
  Weight: 57.6 kg

DRUGS (4)
  1. NORVASC [Suspect]
     Indication: HYPERTENSION
     Dates: start: 19960101, end: 20061218
  2. DIOVAN [Suspect]
     Dates: start: 20061218
  3. ATENOLOL [Concomitant]
  4. ZOCOR [Concomitant]

REACTIONS (1)
  - HYPERTENSION [None]
